FAERS Safety Report 17678536 (Version 2)
Quarter: 2020Q2

REPORT INFORMATION
  Report Type: Report from Study
  Country: US (occurrence: US)
  Receive Date: 20200417
  Receipt Date: 20200519
  Transmission Date: 20200714
  Serious: Yes (Hospitalization)
  Sender: FDA-Public Use
  Company Number: US-ACTELION-A-NJ2020-204214

PATIENT
  Sex: Female
  Weight: 30.39 kg

DRUGS (4)
  1. WARFARIN [Concomitant]
     Active Substance: WARFARIN
  2. OPSUMIT [Suspect]
     Active Substance: MACITENTAN
     Indication: PULMONARY ARTERIAL HYPERTENSION
     Dosage: 10 MG, QD
     Route: 048
  3. REVATIO [Suspect]
     Active Substance: SILDENAFIL CITRATE
     Indication: PRODUCT USED FOR UNKNOWN INDICATION
     Dosage: 40 MG, TID
     Route: 048
     Dates: start: 2019
  4. REVATIO [Suspect]
     Active Substance: SILDENAFIL CITRATE
     Dosage: 20 MG, TID
     Route: 048

REACTIONS (7)
  - Dyspnoea [Unknown]
  - Oedema [Recovering/Resolving]
  - Cardiac failure [Unknown]
  - Cardiac discomfort [Unknown]
  - Fluid retention [Recovering/Resolving]
  - Gout [Unknown]
  - Weight decreased [Recovering/Resolving]
